FAERS Safety Report 14323218 (Version 5)
Quarter: 2018Q3

REPORT INFORMATION
  Report Type: Report from Study
  Country: None (occurrence: US)
  Receive Date: 20171226
  Receipt Date: 20180827
  Transmission Date: 20181010
  Serious: Yes (Hospitalization, Other)
  Sender: FDA-Public Use
  Company Number: US-ABBVIE-17K-163-2165733-00

PATIENT
  Age: 53 Year
  Sex: Female

DRUGS (5)
  1. HUMIRA [Suspect]
     Active Substance: ADALIMUMAB
     Indication: RHEUMATOID ARTHRITIS
     Route: 058
     Dates: end: 2017
  2. HUMIRA [Suspect]
     Active Substance: ADALIMUMAB
     Route: 058
     Dates: start: 20180327, end: 20180327
  3. HUMIRA [Suspect]
     Active Substance: ADALIMUMAB
     Route: 058
     Dates: start: 2018, end: 2018
  4. METHOTREXATE. [Suspect]
     Active Substance: METHOTREXATE
     Indication: PRODUCT USED FOR UNKNOWN INDICATION
     Route: 065
  5. HUMIRA [Suspect]
     Active Substance: ADALIMUMAB
     Route: 058

REACTIONS (49)
  - Wound complication [Recovered/Resolved]
  - Bacterial infection [Unknown]
  - Malaise [Unknown]
  - Pain [Unknown]
  - Back pain [Unknown]
  - Arthropod bite [Recovered/Resolved]
  - Rash papular [Unknown]
  - Defaecation urgency [Unknown]
  - Rheumatoid nodule [Unknown]
  - Decreased appetite [Unknown]
  - Weight decreased [Unknown]
  - Dizziness [Recovered/Resolved]
  - Diarrhoea [Not Recovered/Not Resolved]
  - Cardiac murmur [Unknown]
  - Aortic aneurysm [Unknown]
  - Weight decreased [Recovered/Resolved]
  - Hypoaesthesia [Unknown]
  - Haematochezia [Unknown]
  - Pain [Unknown]
  - Limb injury [Unknown]
  - Balance disorder [Unknown]
  - Upper respiratory tract irritation [Unknown]
  - Middle ear effusion [Unknown]
  - Gastrooesophageal reflux disease [Unknown]
  - Rheumatoid arthritis [Unknown]
  - Injection site pain [Unknown]
  - Peripheral swelling [Unknown]
  - Feeding disorder [Unknown]
  - Fall [Unknown]
  - Arthralgia [Unknown]
  - Dyspnoea exertional [Unknown]
  - Discomfort [Unknown]
  - Dizziness postural [Unknown]
  - Abdominal pain upper [Unknown]
  - Sinusitis [Recovered/Resolved]
  - Ear infection [Recovered/Resolved]
  - Nausea [Unknown]
  - Ear discomfort [Unknown]
  - Suicidal ideation [Recovering/Resolving]
  - Emphysema [Unknown]
  - Contusion [Unknown]
  - Asthma [Unknown]
  - Pain in extremity [Unknown]
  - Scar [Recovered/Resolved]
  - Chest injury [Unknown]
  - Pleural effusion [Unknown]
  - Ear infection [Unknown]
  - Sinusitis [Unknown]
  - Vomiting [Unknown]

NARRATIVE: CASE EVENT DATE: 2011
